FAERS Safety Report 12421922 (Version 2)
Quarter: 2016Q2

REPORT INFORMATION
  Report Type: Spontaneous
  Country: US (occurrence: US)
  Receive Date: 20160531
  Receipt Date: 20160610
  Transmission Date: 20160815
  Serious: Yes (Hospitalization, Other)
  Sender: FDA-Public Use
  Company Number: US-DSJP-DSU-2016-108472

PATIENT
  Age: 47 Year
  Sex: Female
  Weight: 90.7 kg

DRUGS (5)
  1. BENICAR HCT [Suspect]
     Active Substance: HYDROCHLOROTHIAZIDE\OLMESARTAN MEDOXOMIL
     Indication: HYPERTENSION
     Dosage: 40MG/25 MG, UNK
     Dates: start: 2008, end: 2013
  2. BENICAR [Suspect]
     Active Substance: OLMESARTAN MEDOXOMIL
     Dosage: 20 MG, UNK
     Dates: start: 2009, end: 2013
  3. BENICAR HCT [Suspect]
     Active Substance: HYDROCHLOROTHIAZIDE\OLMESARTAN MEDOXOMIL
     Dosage: 20/12.5 MG, QD
     Route: 048
     Dates: start: 2008, end: 2013
  4. BENICAR [Suspect]
     Active Substance: OLMESARTAN MEDOXOMIL
     Indication: HYPERTENSION
     Dosage: 40 MG, UNK
     Dates: start: 2008, end: 2013
  5. IRON COMPLEX                       /00023501/ [Concomitant]
     Indication: MINERAL SUPPLEMENTATION
     Dosage: UNK

REACTIONS (11)
  - Diverticulum [Unknown]
  - Chronic gastrointestinal bleeding [Unknown]
  - Rectal polyp [Unknown]
  - Polyp [Unknown]
  - Clostridium difficile colitis [Recovered/Resolved]
  - Colitis ulcerative [Unknown]
  - Irritable bowel syndrome [Not Recovered/Not Resolved]
  - Inflammatory bowel disease [Recovered/Resolved]
  - Acute kidney injury [Unknown]
  - Malabsorption [Unknown]
  - Duodenal polyp [Unknown]

NARRATIVE: CASE EVENT DATE: 2008
